FAERS Safety Report 16059551 (Version 1)
Quarter: 2019Q1

REPORT INFORMATION
  Report Type: Spontaneous
  Country: US (occurrence: US)
  Receive Date: 20190311
  Receipt Date: 20190311
  Transmission Date: 20190418
  Serious: No
  Sender: FDA-Public Use
  Company Number: US-ACTELION-A-NJ2019-186702

PATIENT
  Sex: Female

DRUGS (1)
  1. UPTRAVI [Suspect]
     Active Substance: SELEXIPAG
     Indication: PULMONARY ARTERIAL HYPERTENSION
     Dosage: 600 MCG, BID
     Route: 048

REACTIONS (12)
  - White blood cell count increased [Unknown]
  - Bone contusion [Unknown]
  - Myalgia [Unknown]
  - Lymphoedema [Unknown]
  - Gait disturbance [Unknown]
  - Basophil count [Unknown]
  - Contusion [Unknown]
  - Dyspnoea [Unknown]
  - Bone marrow oedema [Unknown]
  - Joint stiffness [Unknown]
  - Cardiac disorder [Unknown]
  - Arthralgia [Unknown]
